FAERS Safety Report 19001653 (Version 1)
Quarter: 2021Q1

REPORT INFORMATION
  Report Type: Spontaneous
  Country: US (occurrence: US)
  Receive Date: 20210312
  Receipt Date: 20210312
  Transmission Date: 20210420
  Serious: No
  Sender: FDA-Public Use
  Company Number: US-FARMAPROD-202011-1546

PATIENT
  Sex: Male
  Weight: 88.53 kg

DRUGS (15)
  1. NITROGLYCERIN. [Concomitant]
     Active Substance: NITROGLYCERIN
  2. MELOXICAM. [Concomitant]
     Active Substance: MELOXICAM
  3. ERYTHROMYCIN. [Concomitant]
     Active Substance: ERYTHROMYCIN
  4. CELEXA [Concomitant]
     Active Substance: CITALOPRAM HYDROBROMIDE
  5. AMMONIUM ALUM [Concomitant]
  6. METOPROLOL SUCCINATE. [Concomitant]
     Active Substance: METOPROLOL SUCCINATE
  7. NOVOLOG [Concomitant]
     Active Substance: INSULIN ASPART
     Dosage: 100/ML VIAL
  8. ECOTRIN [Concomitant]
     Active Substance: ASPIRIN
     Dosage: DELAY RELEASE TABLET
  9. OXERVATE [Suspect]
     Active Substance: CENEGERMIN-BKBJ
     Indication: NEUROTROPHIC KERATOPATHY
     Route: 047
     Dates: start: 20201105
  10. CLOPIDOGREL [Concomitant]
     Active Substance: CLOPIDOGREL BISULFATE
  11. VICTOZA [Concomitant]
     Active Substance: LIRAGLUTIDE
     Dosage: 0.6/0.1 ML PEN INJECTION
  12. SIMVASTATIN. [Concomitant]
     Active Substance: SIMVASTATIN
  13. MULTIVITAMINE [Concomitant]
  14. IPRATROPIUM BROMIDE. [Concomitant]
     Active Substance: IPRATROPIUM BROMIDE
  15. LANTUS [Concomitant]
     Active Substance: INSULIN GLARGINE
     Dosage: 100 ML/VIAL

REACTIONS (2)
  - Ocular discomfort [Unknown]
  - Vision blurred [Unknown]
